FAERS Safety Report 10751659 (Version 2)
Quarter: 2015Q4

REPORT INFORMATION
  Report Type: Spontaneous
  Country: US (occurrence: US)
  Receive Date: 20150130
  Receipt Date: 20151023
  Transmission Date: 20160304
  Serious: No
  Sender: FDA-Public Use
  Company Number: US-BAYER-2015-013726

PATIENT
  Age: 86 Year
  Sex: Female
  Weight: 79 kg

DRUGS (3)
  1. ALEVE [Suspect]
     Active Substance: NAPROXEN SODIUM
     Indication: ARTHRALGIA
     Dosage: 1 DF, QD
     Route: 048
     Dates: start: 2013
  2. BAYER LOW DOSE [Concomitant]
     Active Substance: ASPIRIN
  3. ALEVE PM [Suspect]
     Active Substance: DIPHENHYDRAMINE HYDROCHLORIDE\NAPROXEN SODIUM
     Indication: SLEEP DISORDER THERAPY
     Dosage: 0.5 DF, QD
     Route: 048
     Dates: start: 201501, end: 20150127

REACTIONS (2)
  - Incorrect drug administration duration [None]
  - Incorrect drug administration duration [None]

NARRATIVE: CASE EVENT DATE: 2013
